FAERS Safety Report 13284602 (Version 2)
Quarter: 2017Q2

REPORT INFORMATION
  Report Type: Report from Study
  Country: JP (occurrence: JP)
  Receive Date: 20170301
  Receipt Date: 20170612
  Transmission Date: 20170830
  Serious: Yes (Death, Hospitalization)
  Sender: FDA-Public Use
  Company Number: JP-SA-2017SA031213

PATIENT
  Age: 76 Year
  Sex: Male

DRUGS (2)
  1. PHOSBLOCK [Suspect]
     Active Substance: FERRIC HYDROXIDE
     Route: 048
     Dates: start: 20150615
  2. DARBEPOETIN ALFA [Suspect]
     Active Substance: DARBEPOETIN ALFA
     Route: 042
     Dates: start: 20160411

REACTIONS (9)
  - Hospitalisation [Recovering/Resolving]
  - Confusional state [Recovering/Resolving]
  - Angina pectoris [Recovering/Resolving]
  - Mental status changes [Recovering/Resolving]
  - Osteomyelitis [Recovering/Resolving]
  - Subdural haematoma [Recovering/Resolving]
  - Azotaemia [Fatal]
  - Hospitalisation [Recovering/Resolving]
  - Dementia [Recovering/Resolving]

NARRATIVE: CASE EVENT DATE: 20160627
